FAERS Safety Report 10944824 (Version 4)
Quarter: 2015Q3

REPORT INFORMATION
  Report Type: Spontaneous
  Country: JP (occurrence: JP)
  Receive Date: 20150323
  Receipt Date: 20150820
  Transmission Date: 20151125
  Serious: Yes (Other)
  Sender: FDA-Public Use
  Company Number: JP-ROCHE-1554913

PATIENT
  Age: 79 Year
  Sex: Male

DRUGS (7)
  1. VEPESID [Suspect]
     Active Substance: ETOPOSIDE
     Indication: DIFFUSE LARGE B-CELL LYMPHOMA
     Dosage: FOURTH DOSE OF ETOPOSIDE RECEIVED ON 04/MAR/2015
     Route: 048
     Dates: start: 20140910
  2. RITUXAN [Suspect]
     Active Substance: RITUXIMAB
     Route: 042
     Dates: start: 20150304
  3. PREDNISONE. [Concomitant]
     Active Substance: PREDNISONE
     Indication: NON-HODGKIN^S LYMPHOMA
  4. ENDOXAN [Suspect]
     Active Substance: CYCLOPHOSPHAMIDE
     Indication: DIFFUSE LARGE B-CELL LYMPHOMA
     Dosage: NEXT DOSES WERE GIVEN ON 18/OCT/2015,09/FEB/2015 AND 04/MAR/2015.
     Route: 042
     Dates: start: 20140910
  5. ONCOVIN [Concomitant]
     Active Substance: VINCRISTINE SULFATE
     Indication: NON-HODGKIN^S LYMPHOMA
     Route: 042
     Dates: start: 20140910, end: 20150304
  6. RITUXAN [Suspect]
     Active Substance: RITUXIMAB
     Indication: DIFFUSE LARGE B-CELL LYMPHOMA
     Dosage: NEXT DOSES WERE GIVEN ON 18/OCT/2014, 09/FEB/2015 AND 04/MAR/2015.
     Route: 042
     Dates: start: 20140911
  7. METHOTREXATE [Suspect]
     Active Substance: METHOTREXATE
     Indication: DIFFUSE LARGE B-CELL LYMPHOMA
     Dosage: NEXT DOSES WERE GIVEN ON 18/OCT/2015 AND 09/FEB/2015. FOURTH DOSE OF METHOTREXATE RECEIVED ON 04/MAR
     Route: 065

REACTIONS (2)
  - Left ventricular dysfunction [Unknown]
  - Ejection fraction decreased [Not Recovered/Not Resolved]

NARRATIVE: CASE EVENT DATE: 20150304
